FAERS Safety Report 15065579 (Version 1)
Quarter: 2018Q2

REPORT INFORMATION
  Report Type: Report from Study
  Country: None (occurrence: US)
  Receive Date: 20180626
  Receipt Date: 20180626
  Transmission Date: 20180711
  Serious: Yes (Hospitalization, Other)
  Sender: FDA-Public Use
  Company Number: US-ABBVIE-18K-163-2395243-00

PATIENT
  Sex: Female

DRUGS (3)
  1. HUMIRA [Suspect]
     Active Substance: ADALIMUMAB
     Indication: CROHN^S DISEASE
     Route: 058
  2. ICAR [Concomitant]
     Indication: PRODUCT USED FOR UNKNOWN INDICATION
  3. IRON [Concomitant]
     Active Substance: IRON
     Indication: PRODUCT USED FOR UNKNOWN INDICATION

REACTIONS (7)
  - Arthritis [Recovering/Resolving]
  - Gastrointestinal haemorrhage [Unknown]
  - Renal disorder [Recovering/Resolving]
  - Diarrhoea [Unknown]
  - Therapeutic response unexpected [Unknown]
  - Gout [Unknown]
  - Diabetes mellitus [Recovering/Resolving]
